FAERS Safety Report 6408919-7 (Version None)
Quarter: 2009Q4

REPORT INFORMATION
  Report Type: 
  Country: None (occurrence: None)
  Receive Date: 20091021
  Receipt Date: 20091016
  Transmission Date: 20100525
  Serious: Yes (Hospitalization)
  Sender: FDA-Public Use
  Company Number: GB-BRISTOL-MYERS SQUIBB COMPANY-14819916

PATIENT
  Age: 18 Year
  Sex: Female

DRUGS (5)
  1. ABILIFY [Suspect]
     Indication: EPILEPSY
     Dosage: STARTED WITH 5 MG DAILY(1WK),  INCREASED TO 10MG(3WKS) DECREASED TO 7.5 MG DAILY(12OCT09).
  2. ABILIFY [Suspect]
     Indication: LEARNING DISORDER
     Dosage: STARTED WITH 5 MG DAILY(1WK),  INCREASED TO 10MG(3WKS) DECREASED TO 7.5 MG DAILY(12OCT09).
  3. ABILIFY [Suspect]
     Indication: PSYCHOTIC DISORDER
     Dosage: STARTED WITH 5 MG DAILY(1WK),  INCREASED TO 10MG(3WKS) DECREASED TO 7.5 MG DAILY(12OCT09).
  4. CLONAZEPAM [Suspect]
  5. TOPAMAX [Concomitant]

REACTIONS (4)
  - DYSSTASIA [None]
  - HYPOTONIA [None]
  - SEDATION [None]
  - TREMOR [None]
